FAERS Safety Report 6141751-0 (Version None)
Quarter: 2009Q2

REPORT INFORMATION
  Report Type: 
  Country: None (occurrence: None)
  Receive Date: 20090402
  Receipt Date: 20080715
  Transmission Date: 20091009
  Serious: No
  Sender: FDA-Public Use
  Company Number: US-ABBOTT-08P-163-0462760-00

PATIENT
  Sex: Female
  Weight: 76.272 kg

DRUGS (2)
  1. LUPRON DEPOT [Suspect]
     Indication: ENDOMETRIOSIS
     Route: 030
     Dates: start: 20080630
  2. CARBAMAZEPINE [Concomitant]
     Indication: MIGRAINE
     Route: 048
     Dates: start: 20080201

REACTIONS (6)
  - ANORGASMIA [None]
  - FATIGUE [None]
  - HEADACHE [None]
  - HOT FLUSH [None]
  - MOOD SWINGS [None]
  - VULVOVAGINAL DRYNESS [None]
